FAERS Safety Report 16850486 (Version 1)
Quarter: 2019Q3

REPORT INFORMATION
  Report Type: Report from Study
  Country: GB (occurrence: GB)
  Receive Date: 20190925
  Receipt Date: 20190925
  Transmission Date: 20191005
  Serious: Yes (Other)
  Sender: FDA-Public Use
  Company Number: GB-ROCHE-2413304

PATIENT

DRUGS (3)
  1. TINZAPARIN [Concomitant]
     Active Substance: TINZAPARIN
     Indication: PRODUCT USED FOR UNKNOWN INDICATION
     Dosage: DOSE: 100 UNITS/KG INJECTED (TWICE DAILY)
     Route: 058
  2. ALTEPLASE. [Suspect]
     Active Substance: ALTEPLASE
     Indication: VENOUS THROMBOSIS
     Route: 042
  3. HEPARIN [Concomitant]
     Active Substance: HEPARIN SODIUM
     Indication: PRODUCT USED FOR UNKNOWN INDICATION
     Dosage: DOSE: 12UNITS/KG/H
     Route: 065

REACTIONS (1)
  - Blood fibrinogen decreased [Unknown]
